FAERS Safety Report 10372776 (Version 1)
Quarter: 2014Q3

REPORT INFORMATION
  Report Type: Spontaneous
  Country: US (occurrence: US)
  Receive Date: 20140808
  Receipt Date: 20140808
  Transmission Date: 20150326
  Serious: Yes (Other)
  Sender: FDA-Public Use
  Company Number: US-BRISTOL-MYERS SQUIBB COMPANY-19424530

PATIENT
  Age: 66 Year
  Sex: Male
  Weight: 68.03 kg

DRUGS (5)
  1. LASIX [Concomitant]
     Active Substance: FUROSEMIDE
  2. NORVASC [Concomitant]
     Active Substance: AMLODIPINE BESYLATE
  3. SPRYCEL [Suspect]
     Active Substance: DASATINIB
     Indication: CHRONIC MYELOID LEUKAEMIA
     Dosage: LAST DOSE: 09JUL2013, FROM JUN30 DOSE REDUCED TO 50MG/D
     Route: 048
     Dates: start: 201202, end: 201306
  4. ATENOLOL. [Concomitant]
     Active Substance: ATENOLOL
  5. TASIGNA [Concomitant]
     Active Substance: NILOTINIB
     Route: 048

REACTIONS (12)
  - Malignant neoplasm progression [Unknown]
  - Leukopenia [Unknown]
  - Drug intolerance [Unknown]
  - Peripheral swelling [Unknown]
  - Thrombocytopenia [Unknown]
  - Skin lesion [Unknown]
  - Pulmonary oedema [Unknown]
  - Neutropenia [Unknown]
  - Rash [Recovered/Resolved]
  - Fatigue [Unknown]
  - Hepatic enzyme abnormal [Unknown]
  - Rhonchi [Unknown]

NARRATIVE: CASE EVENT DATE: 20120928
